FAERS Safety Report 22309102 (Version 1)
Quarter: 2023Q2

REPORT INFORMATION
  Report Type: Spontaneous
  Country: US (occurrence: None)
  Receive Date: 20230511
  Receipt Date: 20230511
  Transmission Date: 20230722
  Serious: No
  Sender: FDA-Public Use
  Company Number: US-ROCHE-3258078

PATIENT
  Sex: Female

DRUGS (1)
  1. OCREVUS [Suspect]
     Active Substance: OCRELIZUMAB
     Indication: Relapsing multiple sclerosis
     Dosage: WILL START FULL DOSE  OF 600 MG IN 6 MONTHS ;ONGOING: YES
     Route: 042
     Dates: start: 202212

REACTIONS (3)
  - Headache [Recovering/Resolving]
  - Musculoskeletal pain [Recovering/Resolving]
  - Insomnia [Recovered/Resolved]

NARRATIVE: CASE EVENT DATE: 20221201
